FAERS Safety Report 21562275 (Version 1)
Quarter: 2022Q4

REPORT INFORMATION
  Report Type: Spontaneous
  Country: US (occurrence: None)
  Receive Date: 20221104
  Receipt Date: 20221104
  Transmission Date: 20230113
  Serious: No
  Sender: FDA-Public Use
  Company Number: None

PATIENT
  Sex: Male
  Weight: 132.9 kg

DRUGS (4)
  1. CAPECITABINE [Suspect]
     Active Substance: CAPECITABINE
     Indication: Colon cancer
     Dosage: FREQUENCY : DAILY;?
     Route: 048
  2. MELOXICAM [Concomitant]
  3. MULTIVITAMINS/MINERALS (with ADEK, Folate, Iron) [Concomitant]
  4. TRAMADOL [Concomitant]

REACTIONS (1)
  - Drug tolerance decreased [None]
